FAERS Safety Report 18942025 (Version 2)
Quarter: 2021Q1

REPORT INFORMATION
  Report Type: Spontaneous
  Country: US (occurrence: US)
  Receive Date: 20210225
  Receipt Date: 20210319
  Transmission Date: 20210420
  Serious: Yes (Other)
  Sender: FDA-Public Use
  Company Number: US-ORGANON-2102USA001012

PATIENT
  Age: 31 Year
  Sex: Female
  Weight: 77.28 kg

DRUGS (1)
  1. NEXPLANON [Suspect]
     Active Substance: ETONOGESTREL
     Indication: CONTRACEPTION
     Dosage: 1 IMPLANT, UPPER LEFT ARM; ROUTE: IMPLANT
     Route: 059
     Dates: start: 20200701

REACTIONS (6)
  - Device related infection [Recovered/Resolved]
  - Device issue [Not Recovered/Not Resolved]
  - Device deployment issue [Not Recovered/Not Resolved]
  - Complication associated with device [Not Recovered/Not Resolved]
  - Complication of device removal [Not Recovered/Not Resolved]
  - Device expulsion [Unknown]

NARRATIVE: CASE EVENT DATE: 20200701
